FAERS Safety Report 7462044-5 (Version None)
Quarter: 2011Q2

REPORT INFORMATION
  Report Type: 
  Country: None (occurrence: None)
  Receive Date: 20110506
  Receipt Date: 20080812
  Transmission Date: 20111010
  Serious: Yes (Death, Other)
  Sender: FDA-Public Use
  Company Number: US-BAYER-200830904NA

PATIENT
  Age: 72 Year
  Sex: Male
  Weight: 77.098 kg

DRUGS (13)
  1. ACETYLSALICYLIC ACID SRT [Concomitant]
     Dosage: 325 MG, UNK
     Route: 048
  2. RED BLOOD CELLS [Concomitant]
     Dosage: 10 U, UNK
     Route: 042
     Dates: start: 20050823
  3. TRASYLOL [Suspect]
     Indication: CORONARY ARTERY BYPASS
     Dosage: 1 ML, INITIAL DOSE
     Route: 042
     Dates: start: 20050823, end: 20050823
  4. TOPROL-XL [Concomitant]
     Dosage: 100 MG, BID
     Route: 048
  5. VANCOMYCIN [Concomitant]
     Dosage: UNK
     Route: 042
     Dates: start: 20050823, end: 20050823
  6. DIOVAN [Concomitant]
     Dosage: 80 MG, QD
     Route: 048
  7. ZINACEF [Concomitant]
     Dosage: UNK
     Route: 042
     Dates: start: 20050823, end: 20050823
  8. FRESH FROZEN PLASMA [Concomitant]
     Dosage: 4 U, UNK
     Route: 042
     Dates: start: 20050823
  9. LEVOPHED [Concomitant]
     Dosage: UNK
     Route: 042
     Dates: start: 20050823, end: 20050823
  10. PLATELETS [Concomitant]
     Dosage: 18UNK
     Route: 042
     Dates: start: 20050823
  11. TRASYLOL [Suspect]
     Dosage: 200 CC PUMP PRIME
     Route: 042
     Dates: start: 20050823, end: 20050823
  12. TRASYLOL [Suspect]
     Dosage: UNK
     Route: 042
     Dates: start: 20040628
  13. LIPITOR [Concomitant]
     Dosage: 80 MG, UNK
     Route: 048

REACTIONS (10)
  - RENAL FAILURE [None]
  - DISABILITY [None]
  - ANHEDONIA [None]
  - DEATH [None]
  - PAIN [None]
  - UNEVALUABLE EVENT [None]
  - INJURY [None]
  - DEPRESSION [None]
  - ANXIETY [None]
  - FEAR [None]
